FAERS Safety Report 23847570 (Version 1)
Quarter: 2024Q2

REPORT INFORMATION
  Report Type: Spontaneous
  Country: US (occurrence: US)
  Receive Date: 20240513
  Receipt Date: 20240513
  Transmission Date: 20240716
  Serious: No
  Sender: FDA-Public Use
  Company Number: US-AJANTA-2023AJA00211

PATIENT
  Age: 69 Year
  Sex: Female
  Weight: 260 kg

DRUGS (2)
  1. CHOLESTYRAMINE [Suspect]
     Active Substance: CHOLESTYRAMINE
     Indication: Bile acid malabsorption
     Dosage: 1 PACKET DAILY MORNING
     Route: 048
     Dates: start: 202307
  2. SYNTHROID [Concomitant]
     Active Substance: LEVOTHYROXINE SODIUM
     Dosage: NIGHT TIME

REACTIONS (5)
  - Throat irritation [Unknown]
  - Product substitution issue [Unknown]
  - Product solubility abnormal [Unknown]
  - Product packaging difficult to open [Unknown]
  - Therapeutic response unexpected [Unknown]

NARRATIVE: CASE EVENT DATE: 20230101
